FAERS Safety Report 8258226-5 (Version None)
Quarter: 2012Q2

REPORT INFORMATION
  Report Type: 
  Country: None (occurrence: None)
  Receive Date: 20120404
  Receipt Date: 20120330
  Transmission Date: 20120825
  Serious: Yes (Other)
  Sender: FDA-Public Use
  Company Number: PHEH2012US007248

PATIENT
  Sex: Female

DRUGS (2)
  1. CHANTIX [Concomitant]
  2. LAMISIL [Suspect]

REACTIONS (1)
  - RENAL CYST [None]
